FAERS Safety Report 13393182 (Version 1)
Quarter: 2017Q1

REPORT INFORMATION
  Report Type: Spontaneous
  Country: US (occurrence: US)
  Receive Date: 20170331
  Receipt Date: 20170331
  Transmission Date: 20170429
  Serious: No
  Sender: FDA-Public Use
  Company Number: US-SEPTODONT-201603295

PATIENT
  Age: 45 Year
  Sex: Male
  Weight: 95 kg

DRUGS (1)
  1. LIDOCAINE HYDROCHLORIDE 2% WITH EPINEPHRINE 1:100,000 INJECTION [Suspect]
     Active Substance: EPINEPHRINE\LIDOCAINE HYDROCHLORIDE
     Indication: LOCAL ANAESTHESIA
     Dosage: INFILTRATION TECHNIQUE FOR RESTORATIVE DENTAL BONDING TREATMENT IN THE MAXILLA ON TEETH #^S 7 + 8
     Route: 004

REACTIONS (2)
  - Lip swelling [Recovering/Resolving]
  - Skin exfoliation [Recovering/Resolving]
